FAERS Safety Report 8903562 (Version 1)
Quarter: 2012Q4

REPORT INFORMATION
  Report Type: 
  Country: US (occurrence: US)
  Receive Date: 20121113
  Receipt Date: 20121113
  Transmission Date: 20130627
  Serious: No
  Sender: FDA-Public Use
  Company Number: US-009507513-1208USA009596

PATIENT
  Age: 25 Year
  Sex: Female

DRUGS (1)
  1. METHYLPREDNISOLONE SODIUM SUCCINATE [Suspect]
     Indication: VASCULITIS CEREBRAL
     Dosage: 1 g,qd for 5 days
     Route: 042

REACTIONS (1)
  - Drug ineffective [Unknown]
